FAERS Safety Report 24983392 (Version 1)
Quarter: 2025Q1

REPORT INFORMATION
  Report Type: Spontaneous
  Country: US (occurrence: US)
  Receive Date: 20250219
  Receipt Date: 20250219
  Transmission Date: 20250409
  Serious: Yes (Hospitalization)
  Sender: BRISTOL-MYERS SQUIBB COMPANY
  Company Number: US-BRISTOL-MYERS SQUIBB COMPANY-2025-023910

PATIENT
  Age: 69 Year
  Sex: Female
  Weight: 59.1 kg

DRUGS (1)
  1. POMALYST [Suspect]
     Active Substance: POMALIDOMIDE
     Indication: Plasma cell myeloma
     Dosage: FREQUENCY: 2 WEEKS ON. 2 WEEKS OFF
     Route: 048

REACTIONS (2)
  - Influenza [Unknown]
  - Off label use [Unknown]
